FAERS Safety Report 8359870-7 (Version None)
Quarter: 2012Q2

REPORT INFORMATION
  Report Type: 
  Country: None (occurrence: None)
  Receive Date: 20120515
  Receipt Date: 20120509
  Transmission Date: 20120825
  Serious: Yes (Hospitalization)
  Sender: FDA-Public Use
  Company Number: FR-ASTELLAS-2012EU003424

PATIENT
  Sex: Male

DRUGS (2)
  1. DOMPERIDONE [Concomitant]
     Dosage: UNK
     Route: 065
  2. VESICARE [Suspect]
     Dosage: UNK
     Route: 065

REACTIONS (1)
  - HOSPITALISATION [None]
